FAERS Safety Report 5977129-X (Version None)
Quarter: 2008Q4

REPORT INFORMATION
  Report Type: 
  Country: None (occurrence: None)
  Receive Date: 20081201
  Receipt Date: 20081201
  Transmission Date: 20090506
  Serious: Yes (Hospitalization)
  Sender: FDA-Public Use
  Company Number: None

PATIENT
  Age: 88 Year
  Sex: Male
  Weight: 79.06 kg

DRUGS (1)
  1. CEFTRIAXONE AND DEXTROSE IN DUPLEX CONTAINER [Suspect]
     Indication: PNEUMONIA
     Dosage: 1 GM EVERY DAY IV
     Route: 042
     Dates: end: 20081024

REACTIONS (1)
  - RASH [None]
